FAERS Safety Report 20594758 (Version 1)
Quarter: 2022Q1

REPORT INFORMATION
  Report Type: Spontaneous
  Country: CN (occurrence: CN)
  Receive Date: 20220315
  Receipt Date: 20220315
  Transmission Date: 20220423
  Serious: Yes (Other)
  Sender: FDA-Public Use
  Company Number: CN-PRA-001171

PATIENT
  Age: 12 Year
  Sex: Male

DRUGS (2)
  1. METHYLPREDNISOLONE [Interacting]
     Active Substance: METHYLPREDNISOLONE
     Indication: COVID-19
     Dosage: (TILDE 0.58 MG/KG/DAY)
     Route: 041
     Dates: start: 20210815
  2. UMIFENOVIR [Interacting]
     Active Substance: UMIFENOVIR
     Indication: COVID-19
     Dates: start: 20210809

REACTIONS (3)
  - Bradycardia [Recovered/Resolved]
  - Drug interaction [Unknown]
  - Product use in unapproved indication [Unknown]

NARRATIVE: CASE EVENT DATE: 20210101
